FAERS Safety Report 20776444 (Version 3)
Quarter: 2022Q2

REPORT INFORMATION
  Report Type: Spontaneous
  Country: FR (occurrence: FR)
  Receive Date: 20220502
  Receipt Date: 20220614
  Transmission Date: 20220721
  Serious: Yes (Death, Hospitalization, Other)
  Sender: FDA-Public Use
  Company Number: FR-SA-SAC20220428000301

PATIENT
  Age: 87 Year
  Sex: Female
  Weight: 59 kg

DRUGS (16)
  1. ENOXAPARIN SODIUM [Suspect]
     Active Substance: ENOXAPARIN SODIUM
     Indication: Atrial fibrillation
     Dosage: 4,000 IU (40 MG) IN 0.4 ML
     Route: 058
     Dates: start: 20220222, end: 20220302
  2. FUROSEMIDE [Suspect]
     Active Substance: FUROSEMIDE
     Dosage: UNK
  3. ELIQUIS [Suspect]
     Active Substance: APIXABAN
     Dosage: UNK
     Route: 065
  4. SKENAN [Suspect]
     Active Substance: MORPHINE SULFATE
     Dosage: 1/0/1
  5. ECONAZOLE [Concomitant]
     Active Substance: ECONAZOLE
     Dosage: 1/0/1
  6. MORPHINE SULFATE [Concomitant]
     Active Substance: MORPHINE SULFATE
     Indication: Pain
     Dosage: 1 CAPSULE 4/D
  7. TROSPIUM CHLORIDE [Concomitant]
     Active Substance: TROSPIUM CHLORIDE
     Dosage: 20 MG, BID
  8. ALDACTONE [Concomitant]
     Active Substance: SPIRONOLACTONE
     Dosage: HALF TABLET
  9. FOLIC ACID [Concomitant]
     Active Substance: FOLIC ACID
     Dosage: 0/1/0
  10. BACTRIM [Concomitant]
     Active Substance: SULFAMETHOXAZOLE\TRIMETHOPRIM
     Dosage: 1/0/0
     Dates: start: 20210912
  11. SYMBICORT [Concomitant]
     Active Substance: BUDESONIDE\FORMOTEROL FUMARATE DIHYDRATE
     Dosage: 400/12UG 1/0/1
  12. ABSTRAL [Concomitant]
     Active Substance: FENTANYL CITRATE
     Dosage: 1 TABLET BEFORE DRESSING IN THE MORNING
  13. .BETA.-ACETYLDIGOXIN [Concomitant]
     Active Substance: .BETA.-ACETYLDIGOXIN
     Dosage: 1/0/0 EVERY 2 DAYS
  14. LOVENOX [Concomitant]
     Active Substance: ENOXAPARIN SODIUM
     Dosage: UNK
  15. SULFAMETHOXAZOLE\TRIMETHOPRIM [Concomitant]
     Active Substance: SULFAMETHOXAZOLE\TRIMETHOPRIM
     Dosage: UNK
  16. TRANEXAMIC ACID [Concomitant]
     Active Substance: TRANEXAMIC ACID
     Dosage: UNK

REACTIONS (7)
  - Shock haemorrhagic [Fatal]
  - Blister [Fatal]
  - Rash erythematous [Fatal]
  - Hypotension [Fatal]
  - Nausea [Fatal]
  - Vomiting [Fatal]
  - Injection site haematoma [Fatal]

NARRATIVE: CASE EVENT DATE: 20220302
